FAERS Safety Report 15434470 (Version 1)
Quarter: 2018Q3

REPORT INFORMATION
  Report Type: Spontaneous
  Country: TR (occurrence: TR)
  Receive Date: 20180927
  Receipt Date: 20180927
  Transmission Date: 20181010
  Serious: Yes (Other)
  Sender: FDA-Public Use
  Company Number: PHHY2018TR094769

PATIENT
  Age: 34 Year
  Sex: Female

DRUGS (1)
  1. TRILEPTAL [Suspect]
     Active Substance: OXCARBAZEPINE
     Indication: TRIGEMINAL NEURALGIA
     Dosage: 600 MG, UNK
     Route: 048

REACTIONS (6)
  - Somnolence [Unknown]
  - Diplopia [Unknown]
  - Maternal exposure during pregnancy [Unknown]
  - Tongue dry [Unknown]
  - Haemorrhage [Unknown]
  - Product use in unapproved indication [Unknown]
